FAERS Safety Report 4525095-6 (Version None)
Quarter: 2004Q4

REPORT INFORMATION
  Report Type: 
  Country: None (occurrence: None)
  Receive Date: 20041213
  Receipt Date: 20030121
  Transmission Date: 20050328
  Serious: Yes (Other)
  Sender: FDA-Public Use
  Company Number: US-MERCK-0301USA02079

PATIENT
  Age: 58 Year
  Sex: Male
  Weight: 88 kg

DRUGS (1)
  1. VIOXX [Suspect]
     Indication: PAIN
     Route: 048

REACTIONS (40)
  - AMNESIA [None]
  - ARTHRITIS [None]
  - BENIGN PROSTATIC HYPERPLASIA [None]
  - BONE LESION [None]
  - BRADYCARDIA [None]
  - CARDIOVASCULAR DISORDER [None]
  - CAROTID ARTERY STENOSIS [None]
  - CHRONIC OBSTRUCTIVE AIRWAYS DISEASE [None]
  - CONTUSION [None]
  - CORONARY ARTERY DISEASE [None]
  - DECREASED ACTIVITY [None]
  - DECREASED APPETITE [None]
  - DEPRESSION [None]
  - DRUG HYPERSENSITIVITY [None]
  - EXCORIATION [None]
  - FALL [None]
  - GASTRIC ULCER [None]
  - GASTRIC VARICES [None]
  - GLUCOSE TOLERANCE IMPAIRED [None]
  - HYPERLIPIDAEMIA [None]
  - HYPERTENSION [None]
  - INSOMNIA [None]
  - INTERVERTEBRAL DISC PROTRUSION [None]
  - LUMBAR SPINAL STENOSIS [None]
  - MUSCULOSKELETAL DISORDER [None]
  - MYOCARDIAL INFARCTION [None]
  - MYOCARDIAL ISCHAEMIA [None]
  - NERVE ROOT COMPRESSION [None]
  - NIGHTMARE [None]
  - OSTEOARTHRITIS [None]
  - PERIPHERAL VASCULAR DISORDER [None]
  - PNEUMONIA [None]
  - RENAL FAILURE [None]
  - RIB FRACTURE [None]
  - ROTATOR CUFF SYNDROME [None]
  - SHOULDER DEFORMITY [None]
  - SPINAL DECOMPRESSION [None]
  - SPONDYLOSIS [None]
  - TENDONITIS [None]
  - WEIGHT DECREASED [None]
